APPROVED DRUG PRODUCT: LOXAPINE SUCCINATE
Active Ingredient: LOXAPINE SUCCINATE
Strength: EQ 5MG BASE
Dosage Form/Route: CAPSULE;ORAL
Application: A090695 | Product #001 | TE Code: AB
Applicant: LANNETT CO INC
Approved: Sep 26, 2011 | RLD: No | RS: No | Type: RX